FAERS Safety Report 7389729-3 (Version None)
Quarter: 2011Q2

REPORT INFORMATION
  Report Type: 
  Country: None (occurrence: None)
  Receive Date: 20110401
  Receipt Date: 20110321
  Transmission Date: 20111010
  Serious: Yes (Death)
  Sender: FDA-Public Use
  Company Number: BE-ELI_LILLY_AND_COMPANY-BE201103006841

PATIENT

DRUGS (5)
  1. VITAMIN B-12 [Concomitant]
     Indication: PREMEDICATION
  2. FOLIC ACID [Concomitant]
     Indication: PREMEDICATION
  3. DEXAMETHASONE [Concomitant]
     Indication: PREMEDICATION
  4. PEMETREXED [Suspect]
     Indication: NON-SMALL CELL LUNG CANCER METASTATIC
     Dosage: 500 MG/M2, EVERY 21 DAYS
     Route: 042
  5. VANDETANIB [Concomitant]
     Indication: NON-SMALL CELL LUNG CANCER METASTATIC
     Dosage: 100 MG/D, EVERY 21 DAYS

REACTIONS (1)
  - DEATH [None]
